FAERS Safety Report 16697103 (Version 1)
Quarter: 2019Q3

REPORT INFORMATION
  Report Type: Report from Study
  Country: BR (occurrence: BR)
  Receive Date: 20190813
  Receipt Date: 20190813
  Transmission Date: 20191004
  Serious: Yes (Hospitalization, Other)
  Sender: FDA-Public Use
  Company Number: BR-JNJFOC-20190810554

PATIENT
  Age: 68 Year
  Sex: Female
  Weight: 71 kg

DRUGS (4)
  1. AZATHIOPRINE. [Concomitant]
     Active Substance: AZATHIOPRINE
  2. AMLODIPINE [Concomitant]
     Active Substance: AMLODIPINE BESYLATE
  3. INFLIXIMAB, RECOMBINANT [Suspect]
     Active Substance: INFLIXIMAB
     Indication: CROHN^S DISEASE
     Route: 042
     Dates: start: 20050405
  4. VALSARTAN. [Concomitant]
     Active Substance: VALSARTAN

REACTIONS (3)
  - Small intestinal resection [Unknown]
  - Accident [Unknown]
  - Gastrointestinal stoma complication [Unknown]

NARRATIVE: CASE EVENT DATE: 20190523
